FAERS Safety Report 8205440-0 (Version None)
Quarter: 2012Q1

REPORT INFORMATION
  Report Type: 
  Country: None (occurrence: None)
  Receive Date: 20120313
  Receipt Date: 20120307
  Transmission Date: 20120608
  Serious: Yes (Hospitalization)
  Sender: FDA-Public Use
  Company Number: JP-ABBOTT-11P-087-0850280-00

PATIENT
  Sex: Male
  Weight: 70.4 kg

DRUGS (7)
  1. TEPRENONE [Concomitant]
     Indication: CROHN'S DISEASE
     Route: 048
  2. HUMIRA [Suspect]
     Indication: CROHN'S DISEASE
     Route: 058
     Dates: start: 20110804, end: 20110804
  3. ISONIAZID [Concomitant]
     Indication: ANTIBIOTIC PROPHYLAXIS
     Dates: start: 20110804
  4. AZATHIOPRINE [Concomitant]
     Indication: CROHN'S DISEASE
     Route: 048
  5. HUMIRA [Suspect]
     Dates: start: 20110818, end: 20110818
  6. TPN [Concomitant]
     Indication: CROHN'S DISEASE
     Route: 048
  7. MESALAMINE [Concomitant]
     Indication: CROHN'S DISEASE
     Route: 048

REACTIONS (1)
  - INTESTINAL OBSTRUCTION [None]
